FAERS Safety Report 8279213-7 (Version None)
Quarter: 2012Q2

REPORT INFORMATION
  Report Type: 
  Country: None (occurrence: None)
  Receive Date: 20120412
  Receipt Date: 20110607
  Transmission Date: 20120825
  Serious: No
  Sender: FDA-Public Use
  Company Number: US-ASTRAZENECA-2011SE35428

PATIENT
  Age: 589 Month
  Sex: Female

DRUGS (1)
  1. NEXIUM [Suspect]
     Route: 048

REACTIONS (4)
  - DIARRHOEA [None]
  - SWELLING [None]
  - GASTROENTERITIS VIRAL [None]
  - VOMITING [None]
